FAERS Safety Report 5357828-3 (Version None)
Quarter: 2007Q2

REPORT INFORMATION
  Report Type: 
  Country: None (occurrence: None)
  Receive Date: 20070530
  Receipt Date: 20061023
  Transmission Date: 20071010
  Serious: Yes (Hospitalization)
  Sender: FDA-Public Use
  Company Number: US200610004396

PATIENT
  Age: 23 Year
  Sex: Male
  Weight: 77.5 kg

DRUGS (2)
  1. ZYPREXA [Suspect]
     Indication: MOOD SWINGS
     Dosage: 15 MG
     Dates: start: 20021001, end: 20050310
  2. PAROXETINE [Concomitant]

REACTIONS (3)
  - DIABETES MELLITUS INSULIN-DEPENDENT [None]
  - HYPERTENSION [None]
  - METABOLIC DISORDER [None]
